FAERS Safety Report 21901348 (Version 4)
Quarter: 2023Q2

REPORT INFORMATION
  Report Type: Spontaneous
  Country: JP (occurrence: JP)
  Receive Date: 20230123
  Receipt Date: 20230412
  Transmission Date: 20230722
  Serious: Yes (Other)
  Sender: FDA-Public Use
  Company Number: JP-002147023-NVSJ2022JP100577

PATIENT
  Sex: Female
  Weight: 45 kg

DRUGS (1)
  1. COSENTYX [Suspect]
     Active Substance: SECUKINUMAB
     Indication: Product used for unknown indication
     Dosage: UNK
     Route: 058
     Dates: start: 20221027

REACTIONS (2)
  - Weight fluctuation [Unknown]
  - Mood swings [Unknown]

NARRATIVE: CASE EVENT DATE: 20221103
